FAERS Safety Report 23187416 (Version 1)
Quarter: 2023Q4

REPORT INFORMATION
  Report Type: Spontaneous
  Country: US (occurrence: US)
  Receive Date: 20231115
  Receipt Date: 20231115
  Transmission Date: 20240110
  Serious: No
  Sender: FDA-Public Use
  Company Number: US-Prasco Laboratories-PRAS20230341

PATIENT
  Sex: Female

DRUGS (1)
  1. ESTRADIOL [Suspect]
     Active Substance: ESTRADIOL
     Indication: Off label use
     Route: 067
     Dates: start: 20231109

REACTIONS (3)
  - Vulvovaginal discomfort [Not Recovered/Not Resolved]
  - Off label use [None]
  - Product use complaint [None]

NARRATIVE: CASE EVENT DATE: 20231101
